FAERS Safety Report 8811651 (Version 1)
Quarter: 2012Q4

REPORT INFORMATION
  Report Type: 
  Country: US (occurrence: US)
  Receive Date: 20120927
  Receipt Date: 20120927
  Transmission Date: 20130627
  Serious: No
  Sender: FDA-Public Use
  Company Number: US-MUTUAL PHARMACEUTICAL COMPANY, INC.-BCTM20110045

PATIENT
  Sex: Female

DRUGS (1)
  1. BACTRIM TABLETS [Suspect]
     Indication: DRUG USE FOR UNKNOWN INDICATION
     Route: 065

REACTIONS (6)
  - Carpal tunnel syndrome [Unknown]
  - Musculoskeletal pain [Unknown]
  - Neck pain [Unknown]
  - Arthralgia [Unknown]
  - Pain [Unknown]
  - Rash [Unknown]
